FAERS Safety Report 10031577 (Version 2)
Quarter: 2014Q2

REPORT INFORMATION
  Report Type: Spontaneous
  Country: US (occurrence: US)
  Receive Date: 20140324
  Receipt Date: 20140403
  Transmission Date: 20141212
  Serious: No
  Sender: FDA-Public Use
  Company Number: US-PFIZER INC-2014079480

PATIENT
  Age: 69 Year
  Sex: Male

DRUGS (3)
  1. TIKOSYN [Suspect]
     Indication: ATRIAL FIBRILLATION
     Dosage: 500 UG, 2X/DAY
     Dates: start: 201212
  2. CARVEDILOL [Concomitant]
     Indication: CARDIAC DISORDER
     Dosage: 12.5 MG, 2X/DAY
  3. RAMIPRIL [Concomitant]
     Indication: CARDIAC DISORDER
     Dosage: 10 MG, 1X/DAY

REACTIONS (2)
  - Infection [Unknown]
  - Drug ineffective [Unknown]
